FAERS Safety Report 5235705-6 (Version None)
Quarter: 2007Q1

REPORT INFORMATION
  Report Type: 
  Country: None (occurrence: None)
  Receive Date: 20070212
  Receipt Date: 20070205
  Transmission Date: 20070707
  Serious: Yes (Other)
  Sender: FDA-Public Use
  Company Number: AU-GLAXOSMITHKLINE-B0454535A

PATIENT
  Age: 18 Year
  Sex: Male

DRUGS (4)
  1. CARTIA XT [Suspect]
     Dosage: 1TAB PER DAY
     Route: 048
     Dates: start: 20061215, end: 20070131
  2. ACETAMINOPHEN W/ CODEINE [Concomitant]
  3. PANADOL [Concomitant]
  4. TRAMADOL HCL [Concomitant]

REACTIONS (8)
  - DEAFNESS UNILATERAL [None]
  - DIZZINESS [None]
  - EATING DISORDER [None]
  - NAUSEA [None]
  - PARALYSIS [None]
  - TINNITUS [None]
  - VERTIGO [None]
  - VOMITING [None]
